FAERS Safety Report 4389372-4 (Version None)
Quarter: 2004Q2

REPORT INFORMATION
  Report Type: 
  Country: None (occurrence: None)
  Receive Date: 20040630
  Receipt Date: 20040617
  Transmission Date: 20050107
  Serious: Yes (Hospitalization)
  Sender: FDA-Public Use
  Company Number: 2004220134IT

PATIENT
  Age: 72 Year
  Sex: Female

DRUGS (1)
  1. CELEBREX [Suspect]
     Indication: RHEUMATOID ARTHRITIS
     Dosage: 200 MG, BID, ORAL
     Route: 048

REACTIONS (3)
  - ATRIAL FIBRILLATION [None]
  - HYPOTENSION [None]
  - OEDEMA PERIPHERAL [None]
